FAERS Safety Report 6107360-4 (Version None)
Quarter: 2009Q1

REPORT INFORMATION
  Report Type: 
  Country: None (occurrence: None)
  Receive Date: 20090309
  Receipt Date: 20090304
  Transmission Date: 20090719
  Serious: Yes (Other)
  Sender: FDA-Public Use
  Company Number: US-JNJFOC-20090301535

PATIENT
  Sex: Female
  Weight: 99.79 kg

DRUGS (7)
  1. DURAGESIC-100 [Suspect]
     Indication: BACK PAIN
     Route: 062
  2. ORTHO TRI-CYCLEN [Concomitant]
     Indication: CONTRACEPTION
     Dosage: EVERY DAY
     Route: 048
  3. NEXIUM [Concomitant]
     Indication: GASTRIC DISORDER
     Dosage: EVERY DAY
     Route: 048
  4. VITAMIN B COMPLEX CAP [Concomitant]
     Dosage: EVERY DAY
     Route: 048
  5. HYDROCODONE BITARTRATE [Concomitant]
     Indication: PAIN
     Dosage: 1 TO 4 TABLETS AS NEEDED
     Route: 048
  6. NORTRIPTYLINE HCL [Concomitant]
     Indication: SLEEP DISORDER
     Route: 048
  7. XANAX [Concomitant]
     Indication: ANXIETY
     Dosage: EVERY DAY
     Route: 048

REACTIONS (3)
  - DEPRESSION [None]
  - OSTEOARTHRITIS [None]
  - WRONG TECHNIQUE IN DRUG USAGE PROCESS [None]
